FAERS Safety Report 12727904 (Version 1)
Quarter: 2016Q3

REPORT INFORMATION
  Report Type: Spontaneous
  Country: JP (occurrence: JP)
  Receive Date: 20160909
  Receipt Date: 20160909
  Transmission Date: 20161109
  Serious: Yes (Other)
  Sender: FDA-Public Use
  Company Number: JP-ELI_LILLY_AND_COMPANY-JP201609001765

PATIENT
  Age: 83 Year
  Sex: Male

DRUGS (3)
  1. PACLITAXEL. [Concomitant]
     Active Substance: PACLITAXEL
     Indication: GINGIVAL CANCER
     Dosage: 80 MG/M2, UNKNOWN
     Route: 065
     Dates: start: 20160823
  2. ERBITUX [Suspect]
     Active Substance: CETUXIMAB
     Dosage: 250 MG/M2, UNKNOWN
     Route: 042
     Dates: start: 20160823
  3. ERBITUX [Suspect]
     Active Substance: CETUXIMAB
     Indication: GINGIVAL CANCER
     Dosage: 250 MG/M2, WEEKLY (1/W)
     Route: 042
     Dates: start: 201606, end: 201607

REACTIONS (2)
  - Gastrointestinal perforation [Unknown]
  - Off label use [Unknown]

NARRATIVE: CASE EVENT DATE: 20160830
